FAERS Safety Report 16534855 (Version 1)
Quarter: 2019Q3

REPORT INFORMATION
  Report Type: Spontaneous
  Country: FR (occurrence: FR)
  Receive Date: 20190705
  Receipt Date: 20190705
  Transmission Date: 20191004
  Serious: No
  Sender: FDA-Public Use
  Company Number: FR-BEH-2019103834

PATIENT
  Sex: Female
  Weight: 55 kg

DRUGS (3)
  1. SOLUPRED [PREDNISOLONE] [Concomitant]
     Active Substance: PREDNISOLONE
     Dosage: 20 MILLIGRAM, QD
     Route: 065
  2. HIZENTRA [Suspect]
     Active Substance: HUMAN IMMUNOGLOBULIN G
     Indication: POISONING
     Dosage: 6 GRAM, QW
     Route: 065
  3. HIZENTRA [Suspect]
     Active Substance: HUMAN IMMUNOGLOBULIN G
     Indication: NERVOUS SYSTEM DISORDER

REACTIONS (5)
  - Headache [Unknown]
  - Erythema [Unknown]
  - Skin swelling [Unknown]
  - Fatigue [Unknown]
  - Skin reaction [Unknown]
